FAERS Safety Report 7338364-1 (Version None)
Quarter: 2011Q1

REPORT INFORMATION
  Report Type: 
  Country: None (occurrence: None)
  Receive Date: 20110224
  Receipt Date: 20110214
  Transmission Date: 20110831
  Serious: Yes (Other)
  Sender: FDA-Public Use
  Company Number: DSM-2011-00205

PATIENT
  Age: 55 Year
  Sex: Female
  Weight: 72 kg

DRUGS (2)
  1. SIMVASTATIN [Concomitant]
  2. OLMETEC PLUS (HYDROCHLOROTHIAZIDE, OLMESARTAN MEDOXOMIL) (TABLET) (HYD [Suspect]
     Indication: HYPERTENSION
     Dosage: 20/25 MG (1 IN 1 D), ORAL
     Route: 048
     Dates: start: 20110207, end: 20110210

REACTIONS (3)
  - RESTLESSNESS [None]
  - ANXIETY [None]
  - PERSONALITY CHANGE [None]
